FAERS Safety Report 25594592 (Version 1)
Quarter: 2025Q3

REPORT INFORMATION
  Report Type: Report from Study
  Country: US (occurrence: US)
  Receive Date: 20250723
  Receipt Date: 20250723
  Transmission Date: 20251021
  Serious: No
  Sender: ACADIA PHARMACEUTICALS
  Company Number: US-ACADIA PHARMACEUTICALS INC.-ACA-2025-PIM-008445

PATIENT
  Sex: Female

DRUGS (15)
  1. NUPLAZID [Suspect]
     Active Substance: PIMAVANSERIN TARTRATE
     Indication: Parkinson^s disease
     Dosage: 34 MILLIGRAM, QD
     Route: 048
  2. NUPLAZID [Suspect]
     Active Substance: PIMAVANSERIN TARTRATE
     Indication: Hallucination
  3. NUPLAZID [Suspect]
     Active Substance: PIMAVANSERIN TARTRATE
     Indication: Delusion
  4. CARBIDOPA\LEVODOPA [Concomitant]
     Active Substance: CARBIDOPA\LEVODOPA
  5. TYLENOL [Concomitant]
     Active Substance: ACETAMINOPHEN
  6. DICLOFENAC DIETHYLAMINE [Concomitant]
     Active Substance: DICLOFENAC DIETHYLAMINE
  7. CLONAZEPAM [Concomitant]
     Active Substance: CLONAZEPAM
  8. LAMOTRIGINE [Concomitant]
     Active Substance: LAMOTRIGINE
  9. LEVOTHYROXINE [Concomitant]
     Active Substance: LEVOTHYROXINE
  10. LITHIUM CARBONATE [Concomitant]
     Active Substance: LITHIUM CARBONATE
  11. ONDANSETRON [Concomitant]
     Active Substance: ONDANSETRON
  12. MINERALS\VITAMINS [Concomitant]
     Active Substance: MINERALS\VITAMINS
  13. PROPRANOLOL [Concomitant]
     Active Substance: PROPRANOLOL HYDROCHLORIDE
  14. RISPERIDONE [Concomitant]
     Active Substance: RISPERIDONE
  15. TRINTELLIX [Concomitant]
     Active Substance: VORTIOXETINE HYDROBROMIDE

REACTIONS (4)
  - Depressed mood [Not Recovered/Not Resolved]
  - Endoscopy [Not Recovered/Not Resolved]
  - Colonoscopy [Not Recovered/Not Resolved]
  - Product dose omission issue [Not Recovered/Not Resolved]
